FAERS Safety Report 4601861-3 (Version None)
Quarter: 2005Q1

REPORT INFORMATION
  Report Type: 
  Country: None (occurrence: None)
  Receive Date: 20050131
  Receipt Date: 20041123
  Transmission Date: 20050727
  Serious: No
  Sender: FDA-Public Use
  Company Number: 200419065US

PATIENT
  Age: 48 Year
  Sex: Female
  Weight: 66.8 kg

DRUGS (3)
  1. TELITHROMYCIN (KETEK) TABLETS [Suspect]
     Indication: SINUSITIS
     Dosage: QD PO
     Route: 048
     Dates: start: 20041101, end: 20041101
  2. FLUTICASONE PROPIONATE [Concomitant]
  3. SALMETEROL XINAFOATE (ADVAIR) [Concomitant]

REACTIONS (4)
  - ASTHENIA [None]
  - DIPLOPIA [None]
  - DIZZINESS [None]
  - VISION BLURRED [None]
